FAERS Safety Report 4611117-0 (Version None)
Quarter: 2005Q1

REPORT INFORMATION
  Report Type: 
  Country: None (occurrence: None)
  Receive Date: 20050317
  Receipt Date: 20050307
  Transmission Date: 20050727
  Serious: Yes (Life-Threatening)
  Sender: FDA-Public Use
  Company Number: CA-ABBOTT-05P-028-0293472-00

PATIENT
  Sex: Female
  Weight: 70.824 kg

DRUGS (2)
  1. MERIDIA [Suspect]
     Indication: WEIGHT CONTROL
     Route: 048
     Dates: start: 20050128, end: 20050307
  2. PRIMROSE OIL CAPS [Concomitant]
     Indication: DRUG USE FOR UNKNOWN INDICATION
     Route: 048

REACTIONS (5)
  - BLOOD PRESSURE INCREASED [None]
  - BREAST PAIN [None]
  - CHEST DISCOMFORT [None]
  - CHEST PAIN [None]
  - HEART RATE IRREGULAR [None]
